FAERS Safety Report 22777589 (Version 2)
Quarter: 2024Q1

REPORT INFORMATION
  Report Type: Spontaneous
  Country: IT (occurrence: IT)
  Receive Date: 20230802
  Receipt Date: 20240131
  Transmission Date: 20240409
  Serious: Yes (Other)
  Sender: FDA-Public Use
  Company Number: IT-SUN PHARMACEUTICAL INDUSTRIES LTD-2023RR-401938

PATIENT
  Age: 39 Year
  Sex: Male

DRUGS (7)
  1. GEMCITABINE [Suspect]
     Active Substance: GEMCITABINE
     Indication: Hodgkin^s disease
     Dosage: UNK
     Route: 065
     Dates: start: 202001, end: 202103
  2. DOXORUBICIN [Suspect]
     Active Substance: DOXORUBICIN
     Indication: Hodgkin^s disease
     Dosage: UNK
     Route: 065
     Dates: start: 202010
  3. BENDAMUSTINE [Suspect]
     Active Substance: BENDAMUSTINE
     Indication: Hodgkin^s disease
     Dosage: UNK
     Route: 065
     Dates: start: 202001, end: 202103
  4. VINORELBINE [Suspect]
     Active Substance: VINORELBINE TARTRATE
     Indication: Hodgkin^s disease
     Dosage: UNK
     Route: 065
     Dates: start: 202001, end: 202103
  5. DACARBAZINE [Suspect]
     Active Substance: DACARBAZINE
     Indication: Hodgkin^s disease
     Dosage: UNK
     Route: 065
     Dates: start: 202010
  6. BLEOMYCIN [Suspect]
     Active Substance: BLEOMYCIN SULFATE
     Indication: Hodgkin^s disease
     Dosage: UNK
     Route: 065
     Dates: start: 202010
  7. VINBLASTINE [Suspect]
     Active Substance: VINBLASTINE
     Indication: Hodgkin^s disease
     Dosage: UNK
     Route: 065
     Dates: start: 202010

REACTIONS (3)
  - Neutropenia [Unknown]
  - Drug ineffective [Unknown]
  - Haematotoxicity [Unknown]
